FAERS Safety Report 24309887 (Version 2)
Quarter: 2024Q3

REPORT INFORMATION
  Report Type: Spontaneous
  Country: US (occurrence: US)
  Receive Date: 20240912
  Receipt Date: 20240921
  Transmission Date: 20241016
  Serious: Yes (Other)
  Sender: HETERO
  Company Number: US-HETERO-HET2024US02902

PATIENT
  Age: 55 Year

DRUGS (1)
  1. VENLAFAXINE [Suspect]
     Active Substance: VENLAFAXINE HYDROCHLORIDE
     Indication: Product used for unknown indication
     Dosage: UNK
     Route: 065

REACTIONS (13)
  - Thrombosis [Unknown]
  - Weight increased [Recovering/Resolving]
  - Fluid retention [Unknown]
  - Skin irritation [Recovering/Resolving]
  - Feeling abnormal [Unknown]
  - Blood pressure decreased [Unknown]
  - Contusion [Unknown]
  - Hair disorder [Unknown]
  - Fatigue [Unknown]
  - Rash [Recovering/Resolving]
  - Skin swelling [Unknown]
  - Headache [Unknown]
  - Dyspnoea [Recovered/Resolved]
